FAERS Safety Report 22232120 (Version 1)
Quarter: 2023Q2

REPORT INFORMATION
  Report Type: Report from Study
  Country: US (occurrence: US)
  Receive Date: 20230420
  Receipt Date: 20230420
  Transmission Date: 20230722
  Serious: Yes (Hospitalization, Other)
  Sender: FDA-Public Use
  Company Number: US-BoehringerIngelheim-2020-BI-072055

PATIENT
  Age: 77 Year
  Sex: Female

DRUGS (4)
  1. OFEV [Suspect]
     Active Substance: NINTEDANIB
     Indication: Interstitial lung disease
     Dosage: 005203,809177A,8712,3120,003782,102377,005203,809177A,8712,3120,003782,103969,008654,9826,100790,101
     Route: 048
     Dates: start: 20201116
  2. OFEV [Suspect]
     Active Substance: NINTEDANIB
     Indication: Idiopathic pulmonary fibrosis
  3. IRON [Suspect]
     Active Substance: IRON
     Indication: Blood iron decreased
     Route: 065
  4. IMODIUM [Suspect]
     Active Substance: LOPERAMIDE HYDROCHLORIDE
     Indication: Diarrhoea

REACTIONS (49)
  - Fall [Recovered/Resolved]
  - Interstitial lung disease [Recovered/Resolved]
  - Nerve compression [Not Recovered/Not Resolved]
  - Asthenia [Unknown]
  - Nervous system disorder [Unknown]
  - Gait disturbance [Not Recovered/Not Resolved]
  - Blood pressure increased [Recovered/Resolved]
  - Nerve compression [Not Recovered/Not Resolved]
  - Spinal stenosis [Not Recovered/Not Resolved]
  - Brain hypoxia [Unknown]
  - Pneumonia pseudomonal [Unknown]
  - Dysstasia [Unknown]
  - Neuropathy peripheral [Unknown]
  - Dyspnoea [Not Recovered/Not Resolved]
  - Weight decreased [Not Recovered/Not Resolved]
  - Diarrhoea [Not Recovered/Not Resolved]
  - Depressed mood [Not Recovered/Not Resolved]
  - Fatigue [Unknown]
  - Blood iron decreased [Recovering/Resolving]
  - Pain in extremity [Unknown]
  - Abdominal discomfort [Not Recovered/Not Resolved]
  - Pain in extremity [Not Recovered/Not Resolved]
  - Weight increased [Not Recovered/Not Resolved]
  - Anaemia [Unknown]
  - Constipation [Unknown]
  - Glycosylated haemoglobin increased [Unknown]
  - Spondylitis [Unknown]
  - Pain [Unknown]
  - Spinal osteoarthritis [Unknown]
  - Vertigo [Unknown]
  - Dizziness [Unknown]
  - Somnolence [Unknown]
  - Decreased appetite [Not Recovered/Not Resolved]
  - Diabetes mellitus [Unknown]
  - Lung disorder [Unknown]
  - Feeling abnormal [Unknown]
  - Confusional state [Unknown]
  - Intellectual disability [Unknown]
  - Balance disorder [Not Recovered/Not Resolved]
  - Fear [Unknown]
  - Joint swelling [Unknown]
  - Defaecation urgency [Unknown]
  - Dry mouth [Not Recovered/Not Resolved]
  - Cough [Not Recovered/Not Resolved]
  - Feeling abnormal [Unknown]
  - Vasculitis [Unknown]
  - Gait disturbance [Recovered/Resolved]
  - Dyspnoea exertional [Unknown]
  - Autoimmune disorder [Unknown]

NARRATIVE: CASE EVENT DATE: 20201201
